FAERS Safety Report 10930513 (Version 2)
Quarter: 2015Q2

REPORT INFORMATION
  Report Type: Spontaneous
  Country: US (occurrence: US)
  Receive Date: 20150319
  Receipt Date: 20150617
  Transmission Date: 20150821
  Serious: No
  Sender: FDA-Public Use
  Company Number: US-GLAXOSMITHKLINE-US2015033147

PATIENT
  Sex: Female

DRUGS (1)
  1. ADVAIR DISKUS [Suspect]
     Active Substance: FLUTICASONE PROPIONATE\SALMETEROL XINAFOATE
     Indication: KNEE OPERATION
     Dosage: 1 PUFF(S), BID
     Route: 055
     Dates: start: 20150228, end: 20150303

REACTIONS (2)
  - Anger [Unknown]
  - Off label use [Unknown]
